FAERS Safety Report 5323388-6 (Version None)
Quarter: 2007Q2

REPORT INFORMATION
  Report Type: 
  Country: None (occurrence: None)
  Receive Date: 20070514
  Receipt Date: 20070423
  Transmission Date: 20071010
  Serious: Yes (Other)
  Sender: FDA-Public Use
  Company Number: US-JNJFOC-20070401343

PATIENT
  Sex: Male

DRUGS (2)
  1. VIADUR [Suspect]
     Indication: PROSTATE CANCER
     Route: 058
  2. CASODEX [Concomitant]
     Route: 065

REACTIONS (2)
  - DISSEMINATED INTRAVASCULAR COAGULATION [None]
  - ENTEROCOCCAL SEPSIS [None]
